FAERS Safety Report 9236840 (Version 1)
Quarter: 2013Q2

REPORT INFORMATION
  Report Type: Spontaneous
  Country: BR (occurrence: BR)
  Receive Date: 20130417
  Receipt Date: 20130417
  Transmission Date: 20140414
  Serious: Yes (Hospitalization)
  Sender: FDA-Public Use
  Company Number: BR-BRISTOL-MYERS SQUIBB COMPANY-18762773

PATIENT
  Age: 57 Year
  Sex: Female
  Weight: 72 kg

DRUGS (5)
  1. ONGLYZA TABS 5 MG [Suspect]
     Indication: DIABETES MELLITUS
     Dates: start: 201110
  2. ROSUVASTATIN [Suspect]
     Indication: BLOOD CHOLESTEROL INCREASED
     Dates: start: 201201
  3. SOMALGIN CARDIO [Concomitant]
     Indication: COAGULOPATHY
     Dates: start: 2005
  4. LOSARTAN POTASSIUM [Concomitant]
     Dates: start: 2010
  5. METFORMIN [Concomitant]
     Indication: DIABETES MELLITUS
     Dates: start: 2011

REACTIONS (2)
  - Angina pectoris [Recovered/Resolved]
  - Blood cholesterol increased [Recovering/Resolving]
